FAERS Safety Report 10873945 (Version 1)
Quarter: 2015Q1

REPORT INFORMATION
  Report Type: Spontaneous
  Country: US (occurrence: US)
  Receive Date: 20150227
  Receipt Date: 20150227
  Transmission Date: 20150721
  Serious: No
  Sender: FDA-Public Use
  Company Number: US-TARO-2014P1004663

PATIENT
  Age: 19 Year
  Sex: Male

DRUGS (2)
  1. LAMOTRIGINE TABLETS 150 MG [Suspect]
     Active Substance: LAMOTRIGINE
  2. UNSPECIFIED MEDICATIONS [Concomitant]
     Active Substance: UNSPECIFIED INGREDIENT

REACTIONS (1)
  - Epistaxis [Not Recovered/Not Resolved]
